FAERS Safety Report 18994308 (Version 1)
Quarter: 2021Q1

REPORT INFORMATION
  Report Type: Other
  Country: US (occurrence: US)
  Receive Date: 20210311
  Receipt Date: 20210311
  Transmission Date: 20210420
  Serious: Yes (Other)
  Sender: FDA-Public Use
  Company Number: US-ROCHE-2417517

PATIENT
  Age: 63 Year
  Sex: Female

DRUGS (6)
  1. ASPIRIN. [Concomitant]
     Active Substance: ASPIRIN
     Dosage: TAKE 1 TAB ONCE A DAY
     Route: 048
     Dates: start: 20150218
  2. CELLCEPT [Suspect]
     Active Substance: MYCOPHENOLATE MOFETIL\MYCOPHENOLATE MOFETIL HYDROCHLORIDE
     Indication: MYASTHENIA GRAVIS
     Route: 048
     Dates: start: 20130123
  3. MESTINON [Concomitant]
     Active Substance: PYRIDOSTIGMINE BROMIDE
     Dosage: TAKE 1 TAB FOUR TIMES A DAY
     Route: 048
     Dates: start: 20130123
  4. LEVOTHYROXINE SODIUM. [Concomitant]
     Active Substance: LEVOTHYROXINE SODIUM
     Dosage: TAB TAKE 1 TAB BY MOUTH ONCE A DAY
     Dates: start: 20190524
  5. CELLCEPT [Suspect]
     Active Substance: MYCOPHENOLATE MOFETIL\MYCOPHENOLATE MOFETIL HYDROCHLORIDE
     Dosage: 500MG TAB: 3 TABLETS TWICE A DAY
     Route: 048
  6. METFORMIN HCL [Concomitant]
     Active Substance: METFORMIN HYDROCHLORIDE
     Dosage: TAKE 1 TAB ONCE A DAY
     Route: 048
     Dates: start: 20180913

REACTIONS (8)
  - Arteriosclerosis [Unknown]
  - Bronchiectasis [Unknown]
  - Pneumonia [Unknown]
  - Emphysema [Unknown]
  - Cholelithiasis [Unknown]
  - Skin lesion [Unknown]
  - Granuloma [Unknown]
  - Off label use [Unknown]

NARRATIVE: CASE EVENT DATE: 20150706
